FAERS Safety Report 6354336-8 (Version None)
Quarter: 2009Q3

REPORT INFORMATION
  Report Type: 
  Country: None (occurrence: None)
  Receive Date: 20090914
  Receipt Date: 20090907
  Transmission Date: 20100115
  Serious: Yes (Hospitalization)
  Sender: FDA-Public Use
  Company Number: FR-BAYER-200931523GPV

PATIENT
  Age: 48 Year
  Sex: Female

DRUGS (6)
  1. CALCIDIA [Suspect]
     Indication: DRUG USE FOR UNKNOWN INDICATION
     Dosage: TOTAL DAILY DOSE: 3 DF
     Route: 048
     Dates: start: 20090701, end: 20090101
  2. CALCIDIA [Suspect]
     Route: 048
     Dates: end: 20090701
  3. UN-ALFA [Suspect]
     Indication: DRUG USE FOR UNKNOWN INDICATION
     Dosage: TOTAL DAILY DOSE: 1 ?G  UNIT DOSE: 1 ?G
     Route: 048
     Dates: start: 20070101, end: 20090101
  4. CIFLOX [Suspect]
     Indication: URINARY TRACT INFECTION
     Route: 065
     Dates: start: 20090801, end: 20090101
  5. LEVOTHYROXINE SODIUM [Concomitant]
     Dosage: TOTAL DAILY DOSE: 100 ?G  UNIT DOSE: 100 ?G
     Route: 048
  6. TEMERIT [Concomitant]
     Dosage: TOTAL DAILY DOSE: 0.25 MG  UNIT DOSE: 5 MG
     Route: 048

REACTIONS (10)
  - ABDOMINAL PAIN [None]
  - AZOTAEMIA [None]
  - BLOOD CREATININE INCREASED [None]
  - DEHYDRATION [None]
  - HYPERCALCAEMIA [None]
  - HYPOKALAEMIA [None]
  - HYPONATRAEMIA [None]
  - NAUSEA [None]
  - RENAL FAILURE [None]
  - VOMITING [None]
